FAERS Safety Report 4745644-2 (Version None)
Quarter: 2005Q3

REPORT INFORMATION
  Report Type: 
  Country: None (occurrence: None)
  Receive Date: 20050811
  Receipt Date: 20050803
  Transmission Date: 20060218
  Serious: Yes (Life-Threatening)
  Sender: FDA-Public Use
  Company Number: FRP05000610

PATIENT
  Age: 75 Year
  Sex: Female
  Weight: 45 kg

DRUGS (5)
  1. ACTONEL [Suspect]
     Dosage: 35 MG, 1/ WEEK, ORAL
     Route: 048
     Dates: start: 20030101
  2. CACIT D3 (CALCIUM CARBONATE, COLECALCIFEROL) EFFERVESCENT GRANULES, 88 [Suspect]
     Dosage: 1000 MG, DAILY, ORAL
     Route: 048
     Dates: start: 20030101
  3. AMLODIPINE BESYLATE [Suspect]
     Dosage: 5 MG, DAILY, ORAL
     Route: 048
     Dates: start: 20030101
  4. CORTANCYL (PREDNISONE) [Suspect]
     Dosage: 5 MG, DAILY, ORAL
     Route: 048
     Dates: start: 20030101
  5. THALIDOMIDE (THALIDOMIDE) [Suspect]
     Dosage: 50 MG, DAILY, ORAL
     Route: 048
     Dates: start: 20050211

REACTIONS (1)
  - PHLEBITIS [None]
